FAERS Safety Report 7733098-3 (Version None)
Quarter: 2011Q3

REPORT INFORMATION
  Report Type: 
  Country: None (occurrence: None)
  Receive Date: 20110907
  Receipt Date: 20110824
  Transmission Date: 20111222
  Serious: Yes (Hospitalization)
  Sender: FDA-Public Use
  Company Number: JP-MERCK-1106USA02432

PATIENT
  Age: 69 Year
  Sex: Female

DRUGS (11)
  1. HYZAAR [Concomitant]
     Route: 048
     Dates: start: 20080913
  2. EPLERENONE [Concomitant]
     Route: 065
     Dates: start: 20081212
  3. NORVASC [Concomitant]
     Route: 065
     Dates: start: 20021206
  4. AMARYL [Concomitant]
     Route: 065
     Dates: start: 20070123
  5. ALLERMIST [Concomitant]
     Route: 065
     Dates: start: 20100412
  6. SINGULAIR [Concomitant]
     Route: 048
     Dates: start: 20091109
  7. ASMANEX TWISTHALER [Concomitant]
     Route: 065
     Dates: start: 20091212
  8. JANUVIA [Suspect]
     Indication: TYPE 2 DIABETES MELLITUS
     Route: 048
     Dates: start: 20100210
  9. ACTOS [Concomitant]
     Route: 065
     Dates: start: 20080328
  10. JUVELA [Concomitant]
     Route: 065
     Dates: start: 20080624
  11. ZYRTEC [Concomitant]
     Route: 065
     Dates: start: 20100412

REACTIONS (2)
  - VASCULITIS [None]
  - INTERSTITIAL LUNG DISEASE [None]
